FAERS Safety Report 15531942 (Version 1)
Quarter: 2018Q4

REPORT INFORMATION
  Report Type: Spontaneous
  Country: US (occurrence: US)
  Receive Date: 20181019
  Receipt Date: 20181019
  Transmission Date: 20190205
  Serious: No
  Sender: FDA-Public Use
  Company Number: US-BAYER-2018-194303

PATIENT
  Age: 70 Year
  Sex: Male

DRUGS (1)
  1. CLARITIN-D NOS [Suspect]
     Active Substance: LORATADINE\PSEUDOEPHEDRINE SULFATE
     Indication: DYSPNOEA
     Dosage: UNK

REACTIONS (1)
  - Insomnia [Unknown]
